FAERS Safety Report 5468043-7 (Version None)
Quarter: 2007Q3

REPORT INFORMATION
  Report Type: 
  Country: None (occurrence: None)
  Receive Date: 20070820
  Receipt Date: 20070501
  Transmission Date: 20080115
  Serious: No
  Sender: FDA-Public Use
  Company Number: WAES 0702USA03431

PATIENT
  Age: 49 Year
  Sex: Male
  Weight: 106.1417 kg

DRUGS (2)
  1. JANUVIA [Suspect]
     Indication: TYPE 2 DIABETES MELLITUS
     Dosage: 100 MG/DAILY/PO
     Route: 048
     Dates: start: 20070205, end: 20070213
  2. LOPID [Concomitant]

REACTIONS (2)
  - MALAISE [None]
  - PAIN [None]
